FAERS Safety Report 9608496 (Version 1)
Quarter: 2013Q4

REPORT INFORMATION
  Report Type: Spontaneous
  Country: US (occurrence: None)
  Receive Date: 20131007
  Receipt Date: 20131007
  Transmission Date: 20140711
  Serious: Yes (Hospitalization)
  Sender: FDA-Public Use
  Company Number: None

PATIENT
  Age: 64 Year
  Sex: Female
  Weight: 80.1 kg

DRUGS (9)
  1. EVEROLIMUS 10MG NOVARTIS [Suspect]
     Indication: BREAST CANCER METASTATIC
     Route: 048
     Dates: start: 20130829, end: 20130924
  2. FASLODEX [Suspect]
     Indication: BREAST CANCER METASTATIC
     Route: 030
     Dates: start: 20130524, end: 20130925
  3. LIPITOR [Concomitant]
  4. DYAZIDE [Concomitant]
  5. CALCIUM [Concomitant]
  6. VIT D [Concomitant]
  7. XGEVA [Concomitant]
  8. PEPTO-BISMOL [Concomitant]
  9. IMMODIUM [Concomitant]

REACTIONS (9)
  - Diarrhoea [None]
  - Abdominal pain upper [None]
  - Abdominal distension [None]
  - Vomiting [None]
  - Abdominal distension [None]
  - Tenderness [None]
  - Asthenia [None]
  - Gastrointestinal disorder [None]
  - Enteritis infectious [None]
